FAERS Safety Report 11512110 (Version 1)
Quarter: 2015Q3

REPORT INFORMATION
  Report Type: Spontaneous
  Country: US (occurrence: None)
  Receive Date: 20150904
  Receipt Date: 20150904
  Transmission Date: 20151125
  Serious: Yes (Other)
  Sender: FDA-Public Use
  Company Number: 2014-20250

PATIENT
  Sex: Male

DRUGS (1)
  1. FENTANYL UNKNOWN STRENGTH (WATSON LABORATORIES)(FENTANYL) UNK, UNKUNK [Suspect]
     Active Substance: FENTANYL
     Indication: PRODUCT USED FOR UNKNOWN INDICATION
     Route: 062

REACTIONS (5)
  - Drug withdrawal syndrome [None]
  - Insomnia [None]
  - Diarrhoea [None]
  - Intentional product misuse [None]
  - Vomiting [None]
